FAERS Safety Report 16551099 (Version 1)
Quarter: 2019Q3

REPORT INFORMATION
  Report Type: Report from Study
  Country: US (occurrence: US)
  Receive Date: 20190710
  Receipt Date: 20190710
  Transmission Date: 20191004
  Serious: Yes (Death)
  Sender: FDA-Public Use
  Company Number: US-ROCHE-2349190

PATIENT

DRUGS (7)
  1. STREPTOKINASE [Suspect]
     Active Substance: STREPTOKINASE
     Indication: MYOCARDIAL INFARCTION
     Route: 065
  2. STREPTOKINASE [Suspect]
     Active Substance: STREPTOKINASE
     Dosage: 1 MILLION U OVER 60 MINUTES
     Route: 065
  3. ASPIRIN [ACETYLSALICYLIC ACID] [Concomitant]
     Active Substance: ASPIRIN
     Route: 048
  4. HEPARIN [Suspect]
     Active Substance: HEPARIN SODIUM
     Dosage: 5000-U FOLLOWED BY 1000 U/H
     Route: 040
  5. ALTEPLASE. [Suspect]
     Active Substance: ALTEPLASE
     Dosage: 1 MG/KG (MAXIMUM OF 90 MG) OVER 60 MINUTES WITH 10% AS A BOLUS
     Route: 040
  6. ALTEPLASE. [Suspect]
     Active Substance: ALTEPLASE
     Indication: MYOCARDIAL INFARCTION
     Dosage: 15-MG BOLUS THEN 0.75 MG/KG OVER 30 MINUTES AND THEN 0.5 MG/KG OVER 60 MINUTES
     Route: 040
  7. HEPARIN [Suspect]
     Active Substance: HEPARIN SODIUM
     Indication: MYOCARDIAL INFARCTION
     Dosage: 12500 U
     Route: 058

REACTIONS (14)
  - Atrial flutter [Fatal]
  - Myocardial infarction [Fatal]
  - Hypotension [Fatal]
  - Cardiac tamponade [Fatal]
  - Ischaemia [Fatal]
  - Atrial fibrillation [Fatal]
  - Ventricular fibrillation [Fatal]
  - Anaphylactic reaction [Fatal]
  - Atrioventricular block [Fatal]
  - Haemorrhage [Fatal]
  - Shock [Fatal]
  - Ventricular tachycardia [Fatal]
  - Mitral valve incompetence [Fatal]
  - Ventricular septal defect [Fatal]
